FAERS Safety Report 24792646 (Version 1)
Quarter: 2024Q4

REPORT INFORMATION
  Report Type: Spontaneous
  Country: US (occurrence: US)
  Receive Date: 20241231
  Receipt Date: 20241231
  Transmission Date: 20250115
  Serious: No
  Sender: SANOFI AVENTIS
  Company Number: US-SA-2024SA383578

PATIENT
  Age: 47 Year
  Sex: Female

DRUGS (2)
  1. CEREZYME [Suspect]
     Active Substance: IMIGLUCERASE
     Indication: Gaucher^s disease
     Dosage: 400 U, QOW
     Route: 042
     Dates: start: 201612
  2. MIRENA [Concomitant]
     Active Substance: LEVONORGESTREL
     Indication: Complication associated with device
     Dosage: UNK

REACTIONS (1)
  - Palpitations [Unknown]
